FAERS Safety Report 10286012 (Version 1)
Quarter: 2014Q3

REPORT INFORMATION
  Report Type: Spontaneous
  Country: US (occurrence: None)
  Receive Date: 20140703
  Receipt Date: 20140703
  Transmission Date: 20150326
  Serious: Yes (Life-Threatening, Disabling, Other)
  Sender: FDA-Public Use
  Company Number: IMP_07594_2014

PATIENT
  Age: 53 Year
  Sex: Female
  Weight: 83.92 kg

DRUGS (2)
  1. BUPROPION [Suspect]
     Active Substance: BUPROPION
     Indication: DEPRESSION
     Dosage: 1DF DAILY; EVERY FEW DAYS SHE TAKES 2 DF ORAL)
     Dates: start: 201403, end: 20140407
  2. ALPRAZOLAM. [Concomitant]
     Active Substance: ALPRAZOLAM

REACTIONS (7)
  - Rash pruritic [None]
  - Nausea [None]
  - Fatigue [None]
  - Rash erythematous [None]
  - Pain [None]
  - Rash [None]
  - Suicidal ideation [None]

NARRATIVE: CASE EVENT DATE: 201403
